FAERS Safety Report 6750420-5 (Version None)
Quarter: 2010Q2

REPORT INFORMATION
  Report Type: 
  Country: None (occurrence: None)
  Receive Date: 20100601
  Receipt Date: 20100519
  Transmission Date: 20101027
  Serious: Yes (Death, Life-Threatening)
  Sender: FDA-Public Use
  Company Number: CA-ELI_LILLY_AND_COMPANY-CA201005005460

PATIENT
  Age: 73 Year
  Sex: Male

DRUGS (15)
  1. ZYPREXA ZYDIS [Suspect]
     Dosage: 5 MG, DAILY (1/D)
     Route: 048
  2. OLANZAPINE [Suspect]
     Indication: AGITATION
     Dosage: 10 MG, OTHER
     Route: 030
  3. DIPHENHYDRAMINE HYDROCHLORIDE [Concomitant]
     Indication: AGITATION
     Dosage: 50 MG, OTHER
     Route: 030
  4. LORAZEPAM [Concomitant]
     Indication: AGITATION
     Dosage: 2 MG, OTHER
     Route: 030
  5. LORAZEPAM [Concomitant]
     Dosage: 0.5 D/F, DAILY (1/D)
  6. CEFTRIAXONE [Concomitant]
     Indication: PNEUMONIA ASPIRATION
     Dosage: 2 G, DAILY (1/D)
     Route: 042
  7. CITALOPRAM HYDROBROMIDE [Concomitant]
     Dosage: 20 MG, DAILY (1/D)
  8. FUROSEMIDE [Concomitant]
     Dosage: 20 MG, DAILY (1/D)
  9. NAPROXEN [Concomitant]
     Dosage: 500 MG, DAILY (1/D)
  10. OMEPRAZOLE [Concomitant]
     Dosage: 20 MG, DAILY (1/D)
  11. QUETIAPINE [Concomitant]
     Dosage: 50 MG, DAILY (1/D)
  12. ADVAIR DISKUS 100/50 [Concomitant]
     Dosage: 2 D/F, 2/D
     Route: 055
  13. RAMIPRIL [Concomitant]
     Dosage: 10 MG, DAILY (1/D)
  14. TERAZOSIN HCL [Concomitant]
     Dosage: 5 MG, DAILY (1/D)
  15. ROSUVASTATIN [Concomitant]
     Dosage: 20 MG, DAILY (1/D)

REACTIONS (3)
  - DRUG INTERACTION [None]
  - PNEUMONIA ASPIRATION [None]
  - RESPIRATORY ARREST [None]
